FAERS Safety Report 5624353-1 (Version None)
Quarter: 2008Q1

REPORT INFORMATION
  Report Type: 
  Country: None (occurrence: None)
  Receive Date: 20080211
  Receipt Date: 20080211
  Transmission Date: 20080703
  Serious: Yes (Hospitalization, Other)
  Sender: FDA-Public Use
  Company Number: None

PATIENT
  Age: 53 Year
  Sex: Female
  Weight: 72.5755 kg

DRUGS (2)
  1. TRAMADOL HCL [Suspect]
     Indication: CONSTIPATION
     Dosage: 50 MG 4 A DAY NO MORE!
     Dates: start: 20071207, end: 20080105
  2. ADIPEX-P [Suspect]
     Indication: WEIGHT CONTROL
     Dosage: 37.5 MG 1 DAY OTHER
     Route: 050
     Dates: start: 20071207, end: 20080204

REACTIONS (1)
  - GASTROINTESTINAL DISORDER [None]
